FAERS Safety Report 7465940-8 (Version None)
Quarter: 2011Q2

REPORT INFORMATION
  Report Type: 
  Country: None (occurrence: None)
  Receive Date: 20110509
  Receipt Date: 20100513
  Transmission Date: 20111010
  Serious: No
  Sender: FDA-Public Use
  Company Number: US-ALEXION-A201000582

PATIENT
  Sex: Female

DRUGS (12)
  1. SOLIRIS [Suspect]
     Indication: PAROXYSMAL NOCTURNAL HAEMOGLOBINURIA
     Dosage: 600 MG, QW
     Route: 042
     Dates: start: 20100304, end: 20090325
  2. SOLIRIS [Suspect]
     Dosage: 900 MG, Q2W
     Route: 042
     Dates: start: 20090401
  3. HYDROCODONE BITARTRATE [Concomitant]
     Dosage: UNK
  4. FLEXERIL [Concomitant]
     Dosage: UNK
  5. COUMADIN [Concomitant]
     Dosage: UNK
  6. ASTELIN [Concomitant]
     Dosage: UNK
  7. ESTROGEN NOS [Concomitant]
     Dosage: UNK
     Route: 062
  8. HYDROMORPHONE HCL [Concomitant]
     Dosage: UNK
  9. CYMBALTA [Concomitant]
     Dosage: UNK
  10. DEPO-PROVERA [Concomitant]
     Dosage: UNK
  11. PHENOTHIAZINE [Concomitant]
     Dosage: UNK
  12. MORPHINE SULFATE [Concomitant]
     Dosage: UNK

REACTIONS (1)
  - HAEMOGLOBIN DECREASED [None]
